FAERS Safety Report 10062519 (Version 2)
Quarter: 2014Q2

REPORT INFORMATION
  Report Type: Spontaneous
  Country: US (occurrence: US)
  Receive Date: 20140407
  Receipt Date: 20140429
  Transmission Date: 20141212
  Serious: Yes (Death, Hospitalization)
  Sender: FDA-Public Use
  Company Number: US-ACTELION-A-NJ2014-96775

PATIENT
  Age: 79 Year
  Sex: Female

DRUGS (4)
  1. TRACLEER [Suspect]
     Indication: PULMONARY ARTERIAL HYPERTENSION
     Dosage: 125 MG, BID
     Route: 048
     Dates: start: 20100802, end: 201403
  2. ADCIRCA [Concomitant]
  3. TYVASO [Concomitant]
  4. COUMADIN [Concomitant]

REACTIONS (3)
  - Death [Fatal]
  - Asthma [Unknown]
  - Fluid overload [Unknown]
